FAERS Safety Report 5692299-9 (Version None)
Quarter: 2008Q1

REPORT INFORMATION
  Report Type: 
  Country: None (occurrence: None)
  Receive Date: 20080331
  Receipt Date: 20080313
  Transmission Date: 20080703
  Serious: Yes (Other)
  Sender: FDA-Public Use
  Company Number: 8030893

PATIENT
  Age: 57 Year
  Sex: Female

DRUGS (3)
  1. XYZALL /01530201/ [Suspect]
     Indication: RHINITIS ALLERGIC
     Dosage: 5 MG 1/D PO
     Route: 048
     Dates: start: 20080114, end: 20080114
  2. PLAQUENIL [Suspect]
     Indication: RHEUMATOID ARTHRITIS
     Dosage: 400 MG 1/D PO
     Route: 048
     Dates: start: 20080107, end: 20080111
  3. METHOTREXATE [Suspect]
     Indication: RHEUMATOID ARTHRITIS
     Dosage: 10 MG 1/W PO
     Route: 048
     Dates: start: 20071201

REACTIONS (4)
  - AMNESIA [None]
  - DRUG INTERACTION [None]
  - ROAD TRAFFIC ACCIDENT [None]
  - SOMNOLENCE [None]
